FAERS Safety Report 6449633-1 (Version None)
Quarter: 2009Q4

REPORT INFORMATION
  Report Type: 
  Country: None (occurrence: None)
  Receive Date: 20091120
  Receipt Date: 20091102
  Transmission Date: 20100525
  Serious: Yes (Other)
  Sender: FDA-Public Use
  Company Number: US-SANOFI-AVENTIS-2009SA000717

PATIENT
  Age: 50 Year
  Sex: Male

DRUGS (2)
  1. PLAVIX [Suspect]
     Indication: STENT PLACEMENT
     Route: 048
     Dates: start: 19990101
  2. ASPIRIN [Suspect]
     Route: 048

REACTIONS (3)
  - CHEST DISCOMFORT [None]
  - MYOCARDIAL INFARCTION [None]
  - TROPONIN INCREASED [None]
